FAERS Safety Report 5732162-8 (Version None)
Quarter: 2008Q2

REPORT INFORMATION
  Report Type: 
  Country: None (occurrence: None)
  Receive Date: 20080508
  Receipt Date: 20080424
  Transmission Date: 20081010
  Serious: Yes (Hospitalization, Other)
  Sender: FDA-Public Use
  Company Number: US-ELI_LILLY_AND_COMPANY-US200804006362

PATIENT
  Sex: Female

DRUGS (1)
  1. FORTEO [Suspect]
     Indication: OSTEOPOROSIS
     Dates: start: 20070401

REACTIONS (5)
  - ARTHRALGIA [None]
  - FALL [None]
  - HIP FRACTURE [None]
  - KNEE ARTHROPLASTY [None]
  - MOBILITY DECREASED [None]
